FAERS Safety Report 8254165 (Version 2)
Quarter: 2013Q4

REPORT INFORMATION
  Report Type: Spontaneous
  Country: US (occurrence: US)
  Receive Date: 20111118
  Receipt Date: 20131009
  Transmission Date: 20140711
  Serious: No
  Sender: FDA-Public Use
  Company Number: US-BIOGENIDEC-2011BI043496

PATIENT
  Age: 56 Year
  Sex: Female

DRUGS (1)
  1. TYSABRI [Suspect]
     Indication: MULTIPLE SCLEROSIS
     Route: 042
     Dates: start: 20080723, end: 20130109

REACTIONS (5)
  - Depression [Not Recovered/Not Resolved]
  - Visual acuity reduced [Recovered/Resolved]
  - Cataract [Not Recovered/Not Resolved]
  - Immune system disorder [Unknown]
  - Multiple sclerosis [Not Recovered/Not Resolved]
